FAERS Safety Report 23647114 (Version 2)
Quarter: 2024Q4

REPORT INFORMATION
  Report Type: Spontaneous
  Country: FR (occurrence: FR)
  Receive Date: 20240319
  Receipt Date: 20241204
  Transmission Date: 20250115
  Serious: Yes (Life-Threatening, Hospitalization)
  Sender: TEVA
  Company Number: None

PATIENT
  Age: 67 Year
  Sex: Male

DRUGS (2)
  1. LEVETIRACETAM [Suspect]
     Active Substance: LEVETIRACETAM
     Indication: Seizure prophylaxis
     Dosage: 500 MG MORNING AND EVENING, THEN FROM 07/21/2023, 250 MG MORNING AND EVENING
     Route: 048
     Dates: start: 20210204
  2. MIANSERIN [Suspect]
     Active Substance: MIANSERIN
     Indication: Insomnia
     Dosage: 10 MG, THEN 20 MG, THEN SINCE 11/2023: 30 MG/DAY/MIANSERIN (HYDROCHLORIDE)
     Route: 048
     Dates: start: 20230721

REACTIONS (6)
  - Hepatic encephalopathy [Recovered/Resolved]
  - Hepatic encephalopathy [Recovered/Resolved]
  - Hepatic encephalopathy [Recovered/Resolved]
  - Hepatic encephalopathy [Recovered/Resolved]
  - Hepatic encephalopathy [Recovered/Resolved]
  - Hepatic encephalopathy [Recovered/Resolved]

NARRATIVE: CASE EVENT DATE: 20210227
